FAERS Safety Report 25019766 (Version 3)
Quarter: 2025Q4

REPORT INFORMATION
  Report Type: Spontaneous
  Country: US (occurrence: US)
  Receive Date: 20250227
  Receipt Date: 20251219
  Transmission Date: 20260117
  Serious: No
  Sender: NOVARTIS
  Company Number: US-002147023-NVSC2025US031856

PATIENT
  Sex: Male

DRUGS (1)
  1. LEQVIO [Suspect]
     Active Substance: INCLISIRAN SODIUM
     Indication: Product used for unknown indication
     Dosage: 284 MG/KG, Q6MO
     Route: 058
     Dates: start: 20251216, end: 20251216

REACTIONS (3)
  - Pain [Unknown]
  - Syringe issue [Not Recovered/Not Resolved]
  - Device difficult to use [Not Recovered/Not Resolved]
